FAERS Safety Report 20543444 (Version 1)
Quarter: 2022Q1

REPORT INFORMATION
  Report Type: Spontaneous
  Country: DE (occurrence: DE)
  Receive Date: 20220302
  Receipt Date: 20220302
  Transmission Date: 20220424
  Serious: Yes (Hospitalization, Other)
  Sender: FDA-Public Use
  Company Number: DE-BRISTOL-MYERS SQUIBB COMPANY-BMS-2022-017800

PATIENT
  Age: 35 Year
  Sex: Male
  Weight: 85 kg

DRUGS (4)
  1. OPDIVO [Suspect]
     Active Substance: NIVOLUMAB
     Indication: Metastatic malignant melanoma
     Dosage: 1 MILLIGRAM/KILOGRAM 1 CYCLE
     Route: 042
     Dates: start: 20211128
  2. OPDIVO [Suspect]
     Active Substance: NIVOLUMAB
     Dosage: 2 CYCLE
     Route: 065
     Dates: start: 20220118
  3. YERVOY [Suspect]
     Active Substance: IPILIMUMAB
     Indication: Metastatic malignant melanoma
     Dosage: 3 MILLIGRAM/KILOGRAM, 1 CYCLE
     Route: 042
     Dates: start: 20211128
  4. YERVOY [Suspect]
     Active Substance: IPILIMUMAB
     Dosage: 2 CYCLE
     Dates: start: 20220118

REACTIONS (4)
  - Pneumonitis [Recovering/Resolving]
  - Diarrhoea [Recovering/Resolving]
  - Gastroenteritis [Recovering/Resolving]
  - Nausea [Recovering/Resolving]

NARRATIVE: CASE EVENT DATE: 20220123
